FAERS Safety Report 8645632 (Version 4)
Quarter: 2013Q4

REPORT INFORMATION
  Report Type: Report from Study
  Country: LB (occurrence: LB)
  Receive Date: 20120702
  Receipt Date: 20131226
  Transmission Date: 20140711
  Serious: Yes (Hospitalization, Disabling, Other)
  Sender: FDA-Public Use
  Company Number: PHHY2012LB054312

PATIENT
  Age: 81 Year
  Sex: Female

DRUGS (8)
  1. TASIGNA [Suspect]
     Indication: CHRONIC MYELOID LEUKAEMIA
     Dosage: 800 MG, QD
     Route: 048
     Dates: start: 2008
  2. TASIGNA [Suspect]
     Dosage: 400 MG
     Route: 048
     Dates: start: 2011
  3. MODURETIC [Concomitant]
     Dosage: 0.5 DF, DAILY
     Route: 048
     Dates: start: 1996
  4. ZYLORIC [Concomitant]
     Dosage: 1 DF, DAILY
     Dates: start: 2008
  5. VESSEL DUE F [Concomitant]
     Dosage: 1 DF, Q12H
     Route: 048
     Dates: start: 201211
  6. SINVASTATINA [Concomitant]
     Dosage: 1 DF, DAILY
     Route: 048
     Dates: start: 201211
  7. ASPICOT [Concomitant]
     Dosage: 1 DF, DAILY
     Route: 048
     Dates: start: 201211
  8. PROSTAVASIN [Concomitant]
     Route: 042
     Dates: start: 20131207, end: 20131213

REACTIONS (4)
  - Localised infection [Recovered/Resolved with Sequelae]
  - Peripheral ischaemia [Unknown]
  - Peripheral arterial occlusive disease [Not Recovered/Not Resolved]
  - Anaemia [Recovered/Resolved]
